FAERS Safety Report 8792081 (Version 1)
Quarter: 2012Q4

REPORT INFORMATION
  Report Type: 
  Country: US (occurrence: US)
  Receive Date: 20120918
  Receipt Date: 20120918
  Transmission Date: 20130627
  Serious: No
  Sender: FDA-Public Use
  Company Number: US-PFIZER INC-2012227402

PATIENT
  Age: 58 Year
  Sex: Male
  Weight: 83.9 kg

DRUGS (2)
  1. GABAPENTIN [Suspect]
     Indication: BACK PAIN
     Dosage: 300 mg, 2x/day
     Route: 048
     Dates: start: 201208, end: 201209
  2. GABAPENTIN [Suspect]
     Dosage: 300 mg, 1x/day
     Route: 048
     Dates: start: 201209, end: 201209

REACTIONS (10)
  - Feeling abnormal [Unknown]
  - Sleep disorder [Not Recovered/Not Resolved]
  - Anxiety [Recovering/Resolving]
  - Dizziness [Recovered/Resolved]
  - Vision blurred [Recovering/Resolving]
  - Visual impairment [Unknown]
  - Heart rate increased [Unknown]
  - Palpitations [Recovered/Resolved]
  - Nausea [Recovering/Resolving]
  - Tinnitus [Not Recovered/Not Resolved]
